FAERS Safety Report 13527433 (Version 1)
Quarter: 2017Q2

REPORT INFORMATION
  Report Type: Spontaneous
  Country: US (occurrence: US)
  Receive Date: 20170509
  Receipt Date: 20170509
  Transmission Date: 20170830
  Serious: No
  Sender: FDA-Public Use
  Company Number: None

PATIENT
  Age: 71 Year
  Sex: Male
  Weight: 85.35 kg

DRUGS (6)
  1. AMLODIPINE [Concomitant]
     Active Substance: AMLODIPINE BESYLATE
  2. SPIRONOLACTONE. [Concomitant]
     Active Substance: SPIRONOLACTONE
  3. ATENOLOL. [Concomitant]
     Active Substance: ATENOLOL
  4. LEVOFLOXACIN 750MG [Suspect]
     Active Substance: LEVOFLOXACIN
     Indication: URINARY TRACT INFECTION
     Route: 048
     Dates: start: 20170404, end: 20170406
  5. VITAMIN D [Concomitant]
     Active Substance: CHOLECALCIFEROL
  6. SILYMARIN [Concomitant]
     Active Substance: MILK THISTLE

REACTIONS (5)
  - Muscle disorder [None]
  - Arthralgia [None]
  - Muscle tightness [None]
  - Arthropathy [None]
  - Musculoskeletal stiffness [None]

NARRATIVE: CASE EVENT DATE: 20170504
